FAERS Safety Report 12010888 (Version 4)
Quarter: 2016Q2

REPORT INFORMATION
  Report Type: Spontaneous
  Country: PT (occurrence: PT)
  Receive Date: 20160205
  Receipt Date: 20160509
  Transmission Date: 20160815
  Serious: Yes (Disabling, Other)
  Sender: FDA-Public Use
  Company Number: PT-GILEAD-2016-0196472

PATIENT
  Age: 44 Year
  Sex: Male

DRUGS (2)
  1. RIBAVIRINA TEVA [Concomitant]
     Active Substance: RIBAVIRIN
     Indication: CHRONIC HEPATITIS C
     Dosage: 200 MG, TID
     Route: 048
     Dates: start: 20150518, end: 201507
  2. HARVONI [Suspect]
     Active Substance: LEDIPASVIR\SOFOSBUVIR
     Indication: CHRONIC HEPATITIS C
     Dosage: 1 DF, QD
     Route: 048
     Dates: start: 20150518, end: 201508

REACTIONS (2)
  - Visual acuity reduced [Unknown]
  - Papilloedema [Unknown]

NARRATIVE: CASE EVENT DATE: 201508
